FAERS Safety Report 9931553 (Version 1)
Quarter: 2014Q1

REPORT INFORMATION
  Report Type: Spontaneous
  Country: US (occurrence: None)
  Receive Date: 20140227
  Receipt Date: 20140227
  Transmission Date: 20141002
  Serious: Yes (Death, Hospitalization)
  Sender: FDA-Public Use
  Company Number: None

PATIENT
  Age: 66 Year
  Sex: Male

DRUGS (7)
  1. ASPIRIN 325 MG [Suspect]
     Route: 048
  2. AMLODIPINE [Concomitant]
  3. CARVEDILOL [Concomitant]
  4. NOVOLIN [Concomitant]
  5. PROSIGHT [Concomitant]
  6. SIMVASTATIN [Concomitant]
  7. TACROLIMUS [Concomitant]

REACTIONS (3)
  - Blood pressure increased [None]
  - Intraventricular haemorrhage [None]
  - Urosepsis [None]
